FAERS Safety Report 19228186 (Version 3)
Quarter: 2023Q2

REPORT INFORMATION
  Report Type: Spontaneous
  Country: US (occurrence: None)
  Receive Date: 20210506
  Receipt Date: 20230420
  Transmission Date: 20230722
  Serious: No
  Sender: FDA-Public Use
  Company Number: US-ROCHE-2741118

PATIENT
  Sex: Female

DRUGS (7)
  1. ESBRIET [Suspect]
     Active Substance: PIRFENIDONE
     Indication: Idiopathic pulmonary fibrosis
     Route: 048
     Dates: start: 20200729
  2. ESBRIET [Suspect]
     Active Substance: PIRFENIDONE
     Indication: Pulmonary fibrosis
     Route: 048
     Dates: start: 20220219
  3. ESBRIET [Suspect]
     Active Substance: PIRFENIDONE
     Dosage: 534 MG TID PO
     Route: 048
     Dates: start: 20220222
  4. ESBRIET [Suspect]
     Active Substance: PIRFENIDONE
     Route: 048
     Dates: start: 202204
  5. ESBRIET [Suspect]
     Active Substance: PIRFENIDONE
     Route: 048
     Dates: start: 20220513
  6. ESBRIET [Suspect]
     Active Substance: PIRFENIDONE
     Indication: Pulmonary fibrosis
     Route: 048
     Dates: start: 202105
  7. ESBRIET [Suspect]
     Active Substance: PIRFENIDONE
     Route: 048
     Dates: start: 20220408

REACTIONS (12)
  - Decreased appetite [Recovered/Resolved]
  - Weight decreased [Unknown]
  - Nausea [Recovered/Resolved]
  - Asthenia [Unknown]
  - Off label use [Unknown]
  - Fatigue [Unknown]
  - Diarrhoea [Unknown]
  - Weight fluctuation [Unknown]
  - Weight increased [Unknown]
  - Inappropriate schedule of product administration [Unknown]
  - Abdominal distension [Unknown]
  - Cough [Unknown]
